FAERS Safety Report 6976368-9 (Version None)
Quarter: 2010Q3

REPORT INFORMATION
  Report Type: 
  Country: None (occurrence: None)
  Receive Date: 20100910
  Receipt Date: 20100830
  Transmission Date: 20110219
  Serious: Yes (Other)
  Sender: FDA-Public Use
  Company Number: US-PFIZER INC-2010109787

PATIENT
  Sex: Male
  Weight: 106.58 kg

DRUGS (5)
  1. GEODON [Suspect]
     Dosage: 280 MG, 1X/DAY
     Route: 048
  2. GEODON [Suspect]
     Dosage: 240 MG, 1X/DAY
  3. PRAVACHOL [Suspect]
     Dosage: 40 MG, UNK
     Dates: end: 20100101
  4. PRAVACHOL [Suspect]
     Dosage: 20 MG, UNK
     Dates: start: 20100101, end: 20100101
  5. CLOZAPINE [Concomitant]
     Dosage: UNK

REACTIONS (14)
  - AGITATION [None]
  - CARDIAC DISORDER [None]
  - CHILLS [None]
  - COLD SWEAT [None]
  - COMMUNICATION DISORDER [None]
  - CONFUSIONAL STATE [None]
  - CONVULSION [None]
  - DIABETES MELLITUS [None]
  - DRUG TOXICITY [None]
  - ERYTHEMA [None]
  - HALLUCINATION [None]
  - HYPERTENSION [None]
  - RASH [None]
  - TREMOR [None]
